FAERS Safety Report 7486755-0 (Version None)
Quarter: 2011Q2

REPORT INFORMATION
  Report Type: 
  Country: None (occurrence: None)
  Receive Date: 20110517
  Receipt Date: 20110505
  Transmission Date: 20111010
  Serious: Yes (Hospitalization)
  Sender: FDA-Public Use
  Company Number: US-ELI_LILLY_AND_COMPANY-US201105001998

PATIENT
  Sex: Female

DRUGS (3)
  1. HUMALOG [Suspect]
     Dosage: 28 U, BID
     Dates: start: 20110505
  2. HUMALOG [Suspect]
     Indication: DIABETES MELLITUS
     Dosage: UNK
     Dates: end: 20110504
  3. HUMULIN R [Suspect]
     Indication: DIABETES MELLITUS
     Dosage: UNK, PRN
     Dates: end: 20110504

REACTIONS (3)
  - HOSPITALISATION [None]
  - HEADACHE [None]
  - FEELING ABNORMAL [None]
